FAERS Safety Report 8312137-5 (Version None)
Quarter: 2012Q2

REPORT INFORMATION
  Report Type: 
  Country: None (occurrence: None)
  Receive Date: 20120425
  Receipt Date: 20110808
  Transmission Date: 20120825
  Serious: Yes (Other)
  Sender: FDA-Public Use
  Company Number: US-TEVA-US017418

PATIENT
  Sex: Female
  Weight: 47 kg

DRUGS (4)
  1. PROVIGIL [Suspect]
     Indication: SLEEP DISORDER
     Dosage: 300 MILLIGRAM;
     Route: 048
     Dates: start: 20060401
  2. IMITREX [Concomitant]
     Indication: MIGRAINE
     Route: 048
  3. PROVIGIL [Suspect]
     Indication: NARCOLEPSY
     Dosage: 200 MILLIGRAM;
     Route: 048
     Dates: start: 20060101, end: 20060401
  4. ROZEREM [Concomitant]
     Indication: SLEEP DISORDER
     Dosage: 8 MILLIGRAM;
     Route: 048
     Dates: start: 20060101

REACTIONS (2)
  - HEADACHE [None]
  - DYSPNOEA [None]
